APPROVED DRUG PRODUCT: SPORANOX
Active Ingredient: ITRACONAZOLE
Strength: 10MG/ML
Dosage Form/Route: INJECTABLE;INJECTION
Application: N020966 | Product #001
Applicant: JANSSEN PHARMACEUTICALS INC
Approved: Mar 30, 1999 | RLD: No | RS: No | Type: DISCN